FAERS Safety Report 8674025 (Version 6)
Quarter: 2014Q3

REPORT INFORMATION
  Report Type: Spontaneous
  Country: US (occurrence: US)
  Receive Date: 20120719
  Receipt Date: 20140708
  Transmission Date: 20150326
  Serious: Yes (Hospitalization, Disabling, Other)
  Sender: FDA-Public Use
  Company Number: US-009507513-1207USA004451

PATIENT
  Sex: Female
  Weight: 58.96 kg

DRUGS (1)
  1. NUVARING [Suspect]
     Active Substance: ETHINYL ESTRADIOL\ETONOGESTREL
     Indication: CONTRACEPTION
     Dosage: UNK
     Route: 067
     Dates: start: 200604, end: 20100821

REACTIONS (33)
  - Intraocular pressure increased [Unknown]
  - Gastrointestinal disorder [Unknown]
  - Lactose intolerance [Unknown]
  - Drug withdrawal syndrome [Unknown]
  - Depression [Unknown]
  - Back pain [Unknown]
  - Appendicitis [Unknown]
  - Abdominal pain [Not Recovered/Not Resolved]
  - Vomiting [Unknown]
  - Corneal abrasion [Unknown]
  - Lumbar puncture [Unknown]
  - Intracranial venous sinus thrombosis [Recovering/Resolving]
  - VIIth nerve paralysis [Unknown]
  - Bulimia nervosa [Unknown]
  - Bipolar disorder [Unknown]
  - Social phobia [Unknown]
  - Intracranial pressure increased [Not Recovered/Not Resolved]
  - Migraine [Not Recovered/Not Resolved]
  - Constipation [Unknown]
  - Fatigue [Unknown]
  - Angioplasty [Recovering/Resolving]
  - Appendicectomy [Unknown]
  - Headache [Not Recovered/Not Resolved]
  - Thrombolysis [Unknown]
  - Headache [Not Recovered/Not Resolved]
  - Headache [Unknown]
  - Urinary tract infection [Unknown]
  - Suicidal ideation [Unknown]
  - Paresis cranial nerve [Recovering/Resolving]
  - Iron deficiency [Unknown]
  - Hypercoagulation [Unknown]
  - Hypotension [Unknown]
  - Insomnia [Unknown]

NARRATIVE: CASE EVENT DATE: 2010
